FAERS Safety Report 19258078 (Version 5)
Quarter: 2022Q3

REPORT INFORMATION
  Report Type: Spontaneous
  Country: US (occurrence: US)
  Receive Date: 20210514
  Receipt Date: 20220725
  Transmission Date: 20221027
  Serious: Yes (Other)
  Sender: FDA-Public Use
  Company Number: US-GLAXOSMITHKLINE-US2021102544

PATIENT
  Age: 53 Year
  Sex: Female

DRUGS (5)
  1. ZEJULA [Suspect]
     Active Substance: NIRAPARIB
     Indication: Ovarian cancer
     Dosage: 200 MG, QD
     Route: 048
     Dates: start: 20210421
  2. ZEJULA [Suspect]
     Active Substance: NIRAPARIB
     Dosage: 200 MG QD
     Route: 048
     Dates: end: 202107
  3. ZEJULA [Suspect]
     Active Substance: NIRAPARIB
     Dosage: 100 MG, QD
     Dates: start: 20210912
  4. ZEJULA [Suspect]
     Active Substance: NIRAPARIB
     Dosage: 100 MG, QD
     Dates: start: 20220619
  5. LYNPARZA [Suspect]
     Active Substance: OLAPARIB
     Indication: Product used for unknown indication
     Dosage: UNK

REACTIONS (10)
  - Recurrent cancer [Unknown]
  - Cough [Recovering/Resolving]
  - Gingival discomfort [Unknown]
  - Headache [Not Recovered/Not Resolved]
  - Fatigue [Not Recovered/Not Resolved]
  - Haemoglobin decreased [Not Recovered/Not Resolved]
  - Haematocrit decreased [Not Recovered/Not Resolved]
  - Red blood cell count decreased [Unknown]
  - Carbohydrate antigen 125 increased [Unknown]
  - Anaemia [Unknown]

NARRATIVE: CASE EVENT DATE: 20210702
